FAERS Safety Report 5620545-6 (Version None)
Quarter: 2008Q1

REPORT INFORMATION
  Report Type: 
  Country: None (occurrence: None)
  Receive Date: 20080208
  Receipt Date: 20080129
  Transmission Date: 20080703
  Serious: Yes (Other)
  Sender: FDA-Public Use
  Company Number: US-ELI_LILLY_AND_COMPANY-US200801006514

PATIENT
  Age: 34 Year
  Sex: Female

DRUGS (6)
  1. CYMBALTA [Suspect]
     Indication: DEPRESSION
     Dosage: 30 MG, UNK
     Route: 048
     Dates: start: 20060901
  2. CYMBALTA [Suspect]
     Dosage: 90 MG, UNK
     Route: 048
     Dates: end: 20080118
  3. WELLBUTRIN XL [Concomitant]
  4. XANAX [Concomitant]
  5. TOPAMAX [Concomitant]
  6. AMBIEN [Concomitant]

REACTIONS (2)
  - HEPATIC CYST [None]
  - LIVER FUNCTION TEST ABNORMAL [None]
